FAERS Safety Report 4502186-7 (Version None)
Quarter: 2004Q4

REPORT INFORMATION
  Report Type: 
  Country: None (occurrence: None)
  Receive Date: 20041116
  Receipt Date: 20041105
  Transmission Date: 20050328
  Serious: Yes (Hospitalization)
  Sender: FDA-Public Use
  Company Number: BE-ROCHE-385614

PATIENT
  Age: 66 Year
  Sex: Male
  Weight: 78 kg

DRUGS (1)
  1. INTERFERON ALFA-2A [Suspect]
     Route: 058
     Dates: start: 20040830, end: 20041022

REACTIONS (1)
  - TOXIC EPIDERMAL NECROLYSIS [None]
